FAERS Safety Report 10233261 (Version 1)
Quarter: 2014Q2

REPORT INFORMATION
  Report Type: Spontaneous
  Country: US (occurrence: US)
  Receive Date: 20140612
  Receipt Date: 20140612
  Transmission Date: 20141212
  Serious: No
  Sender: FDA-Public Use
  Company Number: US-PFIZER INC-2014161750

PATIENT
  Age: 62 Year
  Sex: Female
  Weight: 73.47 kg

DRUGS (4)
  1. ZOLOFT [Suspect]
     Indication: DYSTHYMIC DISORDER
     Dosage: UNK
  2. ZOLOFT [Suspect]
     Indication: DEPRESSION
  3. ADVAIR [Concomitant]
     Indication: ASTHMA
     Dosage: UNK
  4. PEPCID [Concomitant]
     Indication: GASTRIC DISORDER
     Dosage: UNK

REACTIONS (1)
  - Drug ineffective [Unknown]
